FAERS Safety Report 24621145 (Version 1)
Quarter: 2024Q4

REPORT INFORMATION
  Report Type: Spontaneous
  Country: CA (occurrence: CA)
  Receive Date: 20241114
  Receipt Date: 20241114
  Transmission Date: 20250114
  Serious: Yes (Other)
  Sender: TAKEDA
  Company Number: CA-TAKEDA-2024TUS113470

PATIENT
  Age: 2 Year
  Sex: Male
  Weight: 15 kg

DRUGS (1)
  1. GUANFACINE HYDROCHLORIDE [Suspect]
     Active Substance: GUANFACINE HYDROCHLORIDE
     Indication: Product used for unknown indication
     Dosage: UNK

REACTIONS (9)
  - Toxicity to various agents [Unknown]
  - Depressed level of consciousness [Unknown]
  - Miosis [Unknown]
  - Bradypnoea [Unknown]
  - Lethargy [Unknown]
  - Bradycardia [Unknown]
  - Hypotension [Unknown]
  - Hypertension [Unknown]
  - Accidental exposure to product by child [Unknown]
